FAERS Safety Report 8822632 (Version 1)
Quarter: 2012Q4

REPORT INFORMATION
  Report Type: 
  Country: JP (occurrence: JP)
  Receive Date: 20121003
  Receipt Date: 20121003
  Transmission Date: 20130627
  Serious: Yes (Other)
  Sender: FDA-Public Use
  Company Number: JP-PFIZER INC-2012236727

PATIENT
  Age: 76 Year
  Sex: Female

DRUGS (2)
  1. SOLANAX [Suspect]
     Indication: FATIGUE
     Dosage: 2.4 mg/day (0.4mgx6 tablets)
     Route: 048
  2. SOLANAX [Suspect]
     Dosage: UNK
     Route: 048

REACTIONS (5)
  - Dyspnoea [Unknown]
  - Tremor [Unknown]
  - Pruritus [Unknown]
  - Dry mouth [Unknown]
  - Erythema [Unknown]
